FAERS Safety Report 6455522 (Version 2)
Quarter: 2014Q1

REPORT INFORMATION
  Report Type: Spontaneous
  Country: IT (occurrence: IT)
  Receive Date: 20071030
  Receipt Date: 20140304
  Transmission Date: 20141002
  Serious: Yes (Hospitalization, Other)
  Sender: FDA-Public Use
  Company Number: IT-PFIZER INC-2007087793

PATIENT
  Age: 28 Year
  Sex: Female

DRUGS (5)
  1. ELETRIPTAN [Suspect]
     Indication: MIGRAINE
     Dosage: 40 MG, DAILY
  2. FLUOXETINE [Interacting]
     Indication: BINGE EATING
     Dosage: 60 MG, DAILY
  3. FLUOXETINE [Interacting]
     Indication: PURGING
     Dosage: 40 MG, DAILY
  4. FLUOXETINE [Interacting]
     Indication: EATING DISORDER
  5. ST. JOHN^S WORT [Interacting]
     Dosage: UNK

REACTIONS (8)
  - Drug interaction [Recovered/Resolved]
  - Serotonin syndrome [Recovered/Resolved]
  - Grand mal convulsion [Recovered/Resolved]
  - Loss of consciousness [Recovered/Resolved]
  - Rhabdomyolysis [Recovered/Resolved]
  - Bradyphrenia [Recovered/Resolved]
  - Tremor [Recovered/Resolved]
  - Renal failure acute [Recovered/Resolved]
